FAERS Safety Report 14368776 (Version 2)
Quarter: 2018Q1

REPORT INFORMATION
  Report Type: Spontaneous
  Country: US (occurrence: US)
  Receive Date: 20180109
  Receipt Date: 20180118
  Transmission Date: 20180509
  Serious: Yes (Other)
  Sender: FDA-Public Use
  Company Number: US-PFIZER INC-2017553100

PATIENT
  Age: 15 Year
  Sex: Female
  Weight: 40.2 kg

DRUGS (9)
  1. TALAZOPARIB [Suspect]
     Active Substance: TALAZOPARIB
     Dosage: 600 UG/M2, DAILY, COURSE 2
     Dates: start: 20171128, end: 20171204
  2. IRINOTECAN HCL [Suspect]
     Active Substance: IRINOTECAN HYDROCHLORIDE
     Dosage: 55 MG, EVERY 3 WEEKS (DAILY FOR DAYS 2-6)
     Dates: start: 20161226, end: 20171204
  3. TEMOZOLOMIDE. [Suspect]
     Active Substance: TEMOZOLOMIDE
     Indication: EWING^S SARCOMA
     Dosage: COURSE 1
     Dates: start: 20171026, end: 20171031
  4. TALAZOPARIB [Suspect]
     Active Substance: TALAZOPARIB
     Indication: EWING^S SARCOMA
     Dosage: COURSE 1
     Dates: start: 20171026, end: 20171031
  5. TALAZOPARIB [Suspect]
     Active Substance: TALAZOPARIB
     Dosage: 500 UG, EVERY 3 WEEKS (TWICE DAILY FOR DAY 1)
     Dates: start: 20161026
  6. TALAZOPARIB [Suspect]
     Active Substance: TALAZOPARIB
     Dosage: 800 UG, EVERY 3 WEEKS (DAILY FOR DAYS 2-6)
     Dates: end: 20171204
  7. TEMOZOLOMIDE. [Suspect]
     Active Substance: TEMOZOLOMIDE
     Dosage: 20 MG, EVERY 3 WEEKS (DAYS 2-6)
     Dates: start: 20161226, end: 20171204
  8. IRINOTECAN HCL [Suspect]
     Active Substance: IRINOTECAN HYDROCHLORIDE
     Indication: EWING^S SARCOMA
     Dosage: COURSE 1
     Dates: start: 20171026, end: 20171031
  9. IRINOTECAN HCL [Suspect]
     Active Substance: IRINOTECAN HYDROCHLORIDE
     Dosage: 40 MG/M2, DAILY, COURSE 2
     Dates: start: 20171128, end: 20171204

REACTIONS (2)
  - Neutropenia [Unknown]
  - Thrombocytopenia [Unknown]
